FAERS Safety Report 10036380 (Version 1)
Quarter: 2014Q1

REPORT INFORMATION
  Report Type: Spontaneous
  Country: PL (occurrence: PL)
  Receive Date: 20140325
  Receipt Date: 20140325
  Transmission Date: 20141002
  Serious: Yes (Death, Hospitalization)
  Sender: FDA-Public Use
  Company Number: PHHY2014PL032363

PATIENT
  Age: 34 Year
  Sex: Female

DRUGS (3)
  1. METFORMIN [Suspect]
  2. KETONAL [Suspect]
  3. PHENOTHIAZINE [Suspect]

REACTIONS (16)
  - Death [Fatal]
  - Lactic acidosis [Unknown]
  - Metabolic acidosis [Unknown]
  - General physical health deterioration [Unknown]
  - Convulsion [Unknown]
  - Blood pressure decreased [Unknown]
  - Hepatorenal syndrome [Unknown]
  - Toxicity to various agents [Unknown]
  - Psychomotor retardation [Unknown]
  - Balance disorder [Unknown]
  - Respiratory failure [Unknown]
  - Hepatic failure [Unknown]
  - Pancreatic disorder [Unknown]
  - Suicide attempt [Unknown]
  - Communication disorder [Unknown]
  - Intentional overdose [Unknown]
